FAERS Safety Report 15775864 (Version 1)
Quarter: 2018Q4

REPORT INFORMATION
  Report Type: Spontaneous
  Country: NZ (occurrence: NZ)
  Receive Date: 20181231
  Receipt Date: 20181231
  Transmission Date: 20190205
  Serious: Yes (Other)
  Sender: FDA-Public Use
  Company Number: NZ-SUN PHARMACEUTICAL INDUSTRIES LTD-2018RR-194944

PATIENT

DRUGS (1)
  1. TRAMADOL. [Suspect]
     Active Substance: TRAMADOL
     Indication: PRODUCT USED FOR UNKNOWN INDICATION
     Route: 063

REACTIONS (5)
  - Weight decreased [Recovered/Resolved]
  - Somnolence [Recovered/Resolved]
  - Respiratory disorder [Recovered/Resolved]
  - Feeding disorder [Recovered/Resolved]
  - Exposure via breast milk [Unknown]
